FAERS Safety Report 19572550 (Version 6)
Quarter: 2022Q2

REPORT INFORMATION
  Report Type: Report from Study
  Country: BR (occurrence: BR)
  Receive Date: 20210716
  Receipt Date: 20220505
  Transmission Date: 20220720
  Serious: Yes (Death, Life-Threatening, Hospitalization)
  Sender: FDA-Public Use
  Company Number: BR-JNJFOC-20210720675

PATIENT
  Age: 41 Year
  Sex: Male
  Weight: 78.8 kg

DRUGS (9)
  1. ERDAFITINIB [Suspect]
     Active Substance: ERDAFITINIB
     Indication: Neoplasm
     Dosage: MOST RECENT DOSE OF DRUG ADMINISTERED ON 07-JUL-2021
     Route: 048
     Dates: start: 20210422, end: 20210707
  2. METAMIZOLE SODIUM [Concomitant]
     Active Substance: METAMIZOLE SODIUM
     Indication: Abdominal pain
     Route: 065
     Dates: start: 202009
  3. OMEPRAZOLE [Concomitant]
     Active Substance: OMEPRAZOLE
     Indication: Gastrointestinal disorder therapy
     Route: 065
     Dates: start: 202009
  4. LACRIMAL [Concomitant]
     Indication: Dry eye
     Route: 065
     Dates: start: 20210422
  5. DIMENHYDRINATE\PYRIDOXINE HYDROCHLORIDE [Concomitant]
     Active Substance: DIMENHYDRINATE\PYRIDOXINE HYDROCHLORIDE
     Indication: Prophylaxis of nausea and vomiting
     Route: 065
     Dates: start: 20210506
  6. DIMENHYDRINATE\PYRIDOXINE HYDROCHLORIDE [Concomitant]
     Active Substance: DIMENHYDRINATE\PYRIDOXINE HYDROCHLORIDE
     Dates: start: 20210707, end: 20210723
  7. SIMETHICONE (DIMETHICONE) [Concomitant]
     Active Substance: DIMETHICONE
     Indication: Abdominal pain
     Route: 065
     Dates: start: 20210606
  8. SCOPOLAMINE [Concomitant]
     Active Substance: SCOPOLAMINE
     Indication: Abdominal pain
     Route: 065
     Dates: start: 20210606
  9. ELECTROLYTES NOS\POLYETHYLENE GLYCOL 3350 [Concomitant]
     Active Substance: ELECTROLYTES NOS\POLYETHYLENE GLYCOL 3350
     Indication: Constipation
     Route: 065
     Dates: start: 20210624

REACTIONS (1)
  - Pulmonary embolism [Fatal]

NARRATIVE: CASE EVENT DATE: 20210707
